FAERS Safety Report 8302418-3 (Version None)
Quarter: 2012Q2

REPORT INFORMATION
  Report Type: 
  Country: None (occurrence: None)
  Receive Date: 20120418
  Receipt Date: 20120328
  Transmission Date: 20120825
  Serious: Yes (Other)
  Sender: FDA-Public Use
  Company Number: 2012040054

PATIENT
  Age: 65 Year
  Sex: Male

DRUGS (2)
  1. ZOLPIDEM [Suspect]
     Indication: INSOMNIA
     Dosage: 20 MG, ORAL; 2 TABLET, IN THE MORNING, ORAL
     Route: 048
  2. PREDNISONE TAB [Concomitant]

REACTIONS (5)
  - AMNESIA [None]
  - STARING [None]
  - INAPPROPRIATE SCHEDULE OF DRUG ADMINISTRATION [None]
  - ABNORMAL BEHAVIOUR [None]
  - SLOW RESPONSE TO STIMULI [None]
